FAERS Safety Report 17024229 (Version 1)
Quarter: 2019Q4

REPORT INFORMATION
  Report Type: Spontaneous
  Country: NL (occurrence: NL)
  Receive Date: 20191113
  Receipt Date: 20191113
  Transmission Date: 20200122
  Serious: Yes (Hospitalization)
  Sender: FDA-Public Use
  Company Number: NL-SUN PHARMACEUTICAL INDUSTRIES LTD-2019RR-227350

PATIENT
  Sex: Male

DRUGS (1)
  1. ESOMEPRAZOL SUN [Suspect]
     Active Substance: ESOMEPRAZOLE
     Indication: DYSPEPSIA
     Dosage: 1X DAAGS 1 CAPSULE
     Route: 050
     Dates: start: 20190101

REACTIONS (2)
  - Therapeutic response unexpected [Recovered/Resolved with Sequelae]
  - Dyspepsia [Recovered/Resolved with Sequelae]
